FAERS Safety Report 21189620 (Version 1)
Quarter: 2022Q3

REPORT INFORMATION
  Report Type: Spontaneous
  Country: US (occurrence: US)
  Receive Date: 20220809
  Receipt Date: 20220809
  Transmission Date: 20221027
  Serious: No
  Sender: FDA-Public Use
  Company Number: US-AMNEAL PHARMACEUTICALS-2021-AMRX-03729

PATIENT
  Sex: Male

DRUGS (5)
  1. SILDENAFIL [Suspect]
     Active Substance: SILDENAFIL
     Indication: Erectile dysfunction
     Dosage: 100 MILLIGRAM, 1X/DAY OR AS NEEDED
     Route: 048
     Dates: start: 20210831, end: 2021
  2. SILDENAFIL [Suspect]
     Active Substance: SILDENAFIL
     Dosage: 100 MILLIGRAM, 1X/DAY OR AS NEEDED
     Route: 048
     Dates: start: 201907, end: 202108
  3. SILDENAFIL [Suspect]
     Active Substance: SILDENAFIL
     Dosage: 100 MILLIGRAM, 1X/DAY OR AS NEEDED
     Route: 048
     Dates: start: 202109
  4. VITAMIN D NOS [Concomitant]
     Active Substance: VITAMIN D NOS
     Indication: Product used for unknown indication
     Dosage: UNK
     Route: 065
  5. SYNTHROID [Concomitant]
     Active Substance: LEVOTHYROXINE SODIUM
     Indication: Product used for unknown indication
     Dosage: TAKES THIS ONCE IN A WHILE AFTER CHECK UP
     Route: 065

REACTIONS (2)
  - Drug ineffective [Recovered/Resolved]
  - Product quality issue [Unknown]

NARRATIVE: CASE EVENT DATE: 20210831
